FAERS Safety Report 5042656-9 (Version None)
Quarter: 2006Q3

REPORT INFORMATION
  Report Type: 
  Country: None (occurrence: None)
  Receive Date: 20060705
  Receipt Date: 20060503
  Transmission Date: 20061208
  Serious: Yes (Life-Threatening, Hospitalization)
  Sender: FDA-Public Use
  Company Number: US-SANOFI-SYNTHELABO-F03200600093

PATIENT
  Sex: Female
  Weight: 76.7 kg

DRUGS (18)
  1. OXALIPLATIN [Suspect]
     Indication: NEUROENDOCRINE TUMOUR
     Dosage: 125 MG, 65 MG/M2 EVERY TWO WEEKS
     Route: 042
     Dates: start: 20060428, end: 20060428
  2. ALOXI [Suspect]
     Indication: DRUG USE FOR UNKNOWN INDICATION
     Route: 042
     Dates: start: 20060102, end: 20060428
  3. DEXAMETHASONE TAB [Suspect]
     Indication: DRUG USE FOR UNKNOWN INDICATION
     Route: 042
     Dates: start: 20060102, end: 20060428
  4. AVASTIN [Suspect]
     Indication: NEUROENDOCRINE TUMOUR
     Dosage: 375 MG, 5 MG/KG EVERY TWO WEEKS
     Route: 042
     Dates: start: 20060428, end: 20060428
  5. LEUCOVORIN CALCIUM [Suspect]
     Indication: NEUROENDOCRINE TUMOUR
     Dosage: 390 MG, 200 MG/M2 EVERY TWO WEEKS
     Route: 042
     Dates: start: 20060428, end: 20060428
  6. FLUOROURACIL [Suspect]
     Indication: NEUROENDOCRINE TUMOUR
     Dosage: 620 MG + 1870 MG, 320 MG/M2 + 960 MG/M2 EVERY TWO WEEKS
     Route: 042
     Dates: start: 20060426, end: 20060428
  7. CARAFATE [Concomitant]
     Dosage: UNK
     Route: 048
  8. PROTONIX [Concomitant]
     Dosage: UNK
     Route: 048
  9. OXYCONTIN [Concomitant]
     Route: 048
  10. COLACE [Concomitant]
     Dosage: UNK
     Route: 048
  11. HYDROCHLOROTHIAZIDE [Concomitant]
     Dosage: UNK
     Route: 048
  12. KYTRIL [Concomitant]
     Dosage: UNK
     Route: 065
  13. ATIVAN [Concomitant]
     Dosage: UNK
     Route: 048
  14. COMPAZINE [Concomitant]
     Dosage: UNK
     Route: 048
  15. CELEXA [Concomitant]
     Dosage: UNK
     Route: 048
  16. PANCREASE [Concomitant]
     Dosage: UNK
     Route: 048
  17. VICODIN [Concomitant]
     Route: 048
  18. NORVASC [Concomitant]
     Dosage: UNK
     Route: 048

REACTIONS (11)
  - ABDOMINAL PAIN [None]
  - AORTIC DISSECTION [None]
  - AORTIC THROMBOSIS [None]
  - BACK PAIN [None]
  - BLOOD PRESSURE INCREASED [None]
  - CHEST PAIN [None]
  - CONDITION AGGRAVATED [None]
  - DYSPNOEA [None]
  - HAEMATEMESIS [None]
  - HYPERTENSION [None]
  - VOMITING [None]
